FAERS Safety Report 5393457-3 (Version None)
Quarter: 2007Q3

REPORT INFORMATION
  Report Type: 
  Country: None (occurrence: None)
  Receive Date: 20070723
  Receipt Date: 20060605
  Transmission Date: 20080115
  Serious: No
  Sender: FDA-Public Use
  Company Number: A0607919A

PATIENT
  Age: 71 Year
  Sex: Female

DRUGS (2)
  1. AVANDIA [Suspect]
     Dosage: 4MG TWICE PER DAY
     Route: 048
     Dates: start: 20060428
  2. XANAX [Concomitant]

REACTIONS (9)
  - ANXIETY [None]
  - BLOOD GLUCOSE INCREASED [None]
  - CHROMATURIA [None]
  - DECREASED APPETITE [None]
  - DRY MOUTH [None]
  - HEART RATE INCREASED [None]
  - INSOMNIA [None]
  - TREATMENT NONCOMPLIANCE [None]
  - TREMOR [None]
